FAERS Safety Report 5475276-2 (Version None)
Quarter: 2007Q4

REPORT INFORMATION
  Report Type: 
  Country: None (occurrence: None)
  Receive Date: 20071002
  Receipt Date: 20070926
  Transmission Date: 20080405
  Serious: Yes (Hospitalization)
  Sender: FDA-Public Use
  Company Number: FR-MERCK-0611FRA00050

PATIENT
  Age: 58 Year
  Sex: Female
  Weight: 53 kg

DRUGS (12)
  1. NOROXIN [Suspect]
     Indication: URINARY TRACT INFECTION
     Route: 048
     Dates: start: 20061013, end: 20061018
  2. ACAMPROSATE CALCIUM [Concomitant]
     Indication: ALCOHOLISM
     Route: 048
  3. PYRIDOXINE HYDROCHLORIDE AND THIAMINE HYDROCHLORIDE [Concomitant]
     Route: 048
     Dates: end: 20061014
  4. PYRIDOXINE HYDROCHLORIDE AND THIAMINE HYDROCHLORIDE [Concomitant]
     Route: 048
     Dates: start: 20061017
  5. OXAZEPAM [Concomitant]
     Indication: ANXIETY
     Route: 048
     Dates: start: 20061014, end: 20061017
  6. ZOPICLONE [Concomitant]
     Indication: INSOMNIA
     Route: 048
     Dates: end: 20061014
  7. ZOPICLONE [Concomitant]
     Route: 048
     Dates: start: 20061024
  8. OMEPRAZOLE [Concomitant]
     Route: 048
     Dates: end: 20061014
  9. ESOMEPRAZOLE MAGNESIUM [Concomitant]
     Route: 048
     Dates: start: 20061021
  10. AMITRIPTYLINE HYDROCHLORIDE [Concomitant]
     Route: 048
     Dates: end: 20061014
  11. CYAMEMAZINE [Concomitant]
     Route: 048
     Dates: end: 20061014
  12. CYAMEMAZINE [Concomitant]
     Route: 048
     Dates: start: 20061024

REACTIONS (5)
  - ALANINE AMINOTRANSFERASE INCREASED [None]
  - ASPARTATE AMINOTRANSFERASE INCREASED [None]
  - BLOOD BILIRUBIN INCREASED [None]
  - HEPATIC FAILURE [None]
  - JAUNDICE [None]
